FAERS Safety Report 8424462-8 (Version None)
Quarter: 2012Q2

REPORT INFORMATION
  Report Type: 
  Country: None (occurrence: None)
  Receive Date: 20120610
  Receipt Date: 20120528
  Transmission Date: 20120825
  Serious: Yes (Hospitalization)
  Sender: FDA-Public Use
  Company Number: IT-BRISTOL-MYERS SQUIBB COMPANY-16636755

PATIENT
  Age: 59 Year
  Sex: Male
  Weight: 53 kg

DRUGS (4)
  1. LAMIVUDINE [Suspect]
     Indication: HIV INFECTION
     Dates: start: 20050101
  2. RITONAVIR [Suspect]
     Indication: HIV INFECTION
     Dates: start: 20050101, end: 20071101
  3. ATAZANAVIR [Suspect]
     Indication: HIV INFECTION
     Dosage: NOV07 DOSE INCREASED-400MG/D. REDUCED TO 300MG SEP09.
     Dates: start: 20050101
  4. DIDANOSINE [Suspect]
     Indication: HIV INFECTION
     Dates: start: 20050101

REACTIONS (3)
  - METABOLIC DISORDER [None]
  - HYPERLIPIDAEMIA [None]
  - HYPERBILIRUBINAEMIA [None]
